FAERS Safety Report 22364718 (Version 1)
Quarter: 2023Q2

REPORT INFORMATION
  Report Type: Spontaneous
  Country: US (occurrence: US)
  Receive Date: 20230525
  Receipt Date: 20230525
  Transmission Date: 20230722
  Serious: No
  Sender: FDA-Public Use
  Company Number: US-Ipsen Biopharmaceuticals, Inc.-2023-11470

PATIENT
  Age: 45 Year
  Sex: Female

DRUGS (1)
  1. SOMATULINE DEPOT [Suspect]
     Active Substance: LANREOTIDE ACETATE
     Indication: Product used for unknown indication
     Dosage: 120 MG, EVERY 28 DAYS
     Route: 058
     Dates: start: 20230419

REACTIONS (3)
  - Injection site mass [Not Recovered/Not Resolved]
  - Oophorectomy [Unknown]
  - Hysterectomy [Unknown]

NARRATIVE: CASE EVENT DATE: 20230419
